FAERS Safety Report 17163819 (Version 1)
Quarter: 2019Q4

REPORT INFORMATION
  Report Type: Spontaneous
  Country: SE (occurrence: SE)
  Receive Date: 20191217
  Receipt Date: 20191217
  Transmission Date: 20200122
  Serious: Yes (Hospitalization)
  Sender: FDA-Public Use
  Company Number: SE-AMERICAN REGENT INC-2019002805

PATIENT
  Age: 41 Year
  Sex: Female

DRUGS (1)
  1. FERINJECT [Suspect]
     Active Substance: FERRIC CARBOXYMALTOSE
     Indication: IRON DEFICIENCY ANAEMIA
     Dosage: 20 MILLILITER (FIRST INFUSION)
     Dates: start: 20191119, end: 20191119

REACTIONS (6)
  - Erythema [Recovered/Resolved]
  - Hypoaesthesia oral [Recovered/Resolved]
  - Hypertension [Recovered/Resolved]
  - Adverse drug reaction [Recovered/Resolved]
  - Swollen tongue [Recovered/Resolved]
  - Dyspnoea [Recovered/Resolved]

NARRATIVE: CASE EVENT DATE: 20191119
